FAERS Safety Report 19366063 (Version 1)
Quarter: 2021Q2

REPORT INFORMATION
  Report Type: Spontaneous
  Country: US (occurrence: US)
  Receive Date: 20210603
  Receipt Date: 20210603
  Transmission Date: 20210717
  Serious: No
  Sender: FDA-Public Use
  Company Number: None

PATIENT
  Age: 67 Year
  Sex: Female

DRUGS (1)
  1. HUMIRA [Suspect]
     Active Substance: ADALIMUMAB
     Indication: UVEITIS
     Dosage: ?          OTHER FREQUENCY:DAY1, 40MG (1 PEN); ON DAY 8 THEN 40 MG EVERY OTHER WEEK?
     Route: 058
     Dates: start: 202007

REACTIONS (2)
  - Sputum discoloured [None]
  - Cough [None]
